FAERS Safety Report 23759685 (Version 3)
Quarter: 2024Q3

REPORT INFORMATION
  Report Type: Report from Study
  Country: CO (occurrence: CO)
  Receive Date: 20240419
  Receipt Date: 20240808
  Transmission Date: 20241016
  Serious: Yes (Death, Hospitalization, Other)
  Sender: ABBVIE
  Company Number: CO-ABBVIE-5722395

PATIENT
  Sex: Female

DRUGS (28)
  1. VENCLEXTA [Suspect]
     Active Substance: VENETOCLAX
     Indication: Acute myeloid leukaemia
     Dosage: CYCLE 1, INITIAL
     Route: 048
     Dates: start: 20231028, end: 20231125
  2. VENCLEXTA [Suspect]
     Active Substance: VENETOCLAX
     Indication: Acute myeloid leukaemia
     Dosage: CYCLE 2, MAINTENANCE?FOR SEVEN DAYS, CYCLES EVERY 28 DAYS.
     Route: 048
     Dates: start: 20240409, end: 20240412
  3. VENCLEXTA [Suspect]
     Active Substance: VENETOCLAX
     Indication: Acute myeloid leukaemia
     Route: 048
     Dates: start: 2024
  4. LACTATED RINGERS SOLUTION [Concomitant]
     Active Substance: CALCIUM CHLORIDE\POTASSIUM CHLORIDE\SODIUM CHLORIDE\SODIUM LACTATE
     Indication: Fluid replacement
     Route: 042
     Dates: start: 20231111, end: 20231114
  5. VERAPAMIL [Concomitant]
     Active Substance: VERAPAMIL HYDROCHLORIDE
     Indication: Hypertension
     Route: 048
     Dates: start: 2018
  6. MEROPENEM [Concomitant]
     Active Substance: MEROPENEM
     Indication: Febrile neutropenia
     Dosage: AMPOULE
     Route: 042
     Dates: start: 20231116, end: 20240130
  7. MEROPENEM [Concomitant]
     Active Substance: MEROPENEM
     Indication: Febrile neutropenia
     Dosage: AMPOULE
     Route: 042
     Dates: start: 20240519, end: 20240524
  8. ESOMEPRAZOLE [Concomitant]
     Active Substance: ESOMEPRAZOLE
     Indication: Gastrointestinal disorder prophylaxis
     Route: 048
     Dates: start: 20231110
  9. PREGABALIN [Concomitant]
     Active Substance: PREGABALIN
     Indication: Anxiety disorder
     Route: 048
     Dates: start: 20231114, end: 20231211
  10. DAPTOMYCIN [Concomitant]
     Active Substance: DAPTOMYCIN
     Indication: Febrile neutropenia
     Dosage: AMPOULE
     Route: 042
     Dates: start: 20231109, end: 20231116
  11. DAPTOMYCIN [Concomitant]
     Active Substance: DAPTOMYCIN
     Indication: Febrile neutropenia
     Dosage: AMPOULE
     Route: 042
     Dates: start: 20231120, end: 20231130
  12. VALACYCLOVIR [Concomitant]
     Active Substance: VALACYCLOVIR HYDROCHLORIDE
     Indication: Antiviral prophylaxis
     Route: 048
     Dates: start: 20231114
  13. FUROSEMIDE [Concomitant]
     Active Substance: FUROSEMIDE
     Indication: Prophylaxis
     Route: 048
     Dates: start: 20231116, end: 20231208
  14. FUROSEMIDE [Concomitant]
     Active Substance: FUROSEMIDE
     Indication: Prophylaxis
     Route: 048
     Dates: start: 20231113, end: 20231115
  15. ENOXAPARIN [Concomitant]
     Active Substance: ENOXAPARIN
     Indication: Thrombosis prophylaxis
     Dosage: AMPOULE
     Route: 058
     Dates: start: 20231024, end: 20231120
  16. LOSARTAN [Concomitant]
     Active Substance: LOSARTAN\LOSARTAN POTASSIUM
     Indication: Hypertension
     Route: 048
     Dates: start: 2018, end: 20231106
  17. ACETAMINOPHEN [Concomitant]
     Active Substance: ACETAMINOPHEN
     Indication: Pain
     Route: 048
     Dates: start: 20231028, end: 20231212
  18. SPIRONOLACTONE [Concomitant]
     Active Substance: SPIRONOLACTONE
     Indication: Hypertension
     Route: 048
     Dates: start: 2018, end: 20231212
  19. ALLOPURINOL [Concomitant]
     Active Substance: ALLOPURINOL
     Indication: Prophylaxis
     Route: 048
     Dates: start: 20231024, end: 20231113
  20. FILGRASTIM [Concomitant]
     Active Substance: FILGRASTIM
     Indication: Neutropenia
     Dosage: AMPOULE
     Route: 042
     Dates: start: 20231127, end: 20231201
  21. HYDROCHLOROTHIAZIDE [Concomitant]
     Active Substance: HYDROCHLOROTHIAZIDE
     Indication: Hypertension
     Route: 048
     Dates: start: 2018, end: 20231106
  22. PRAZOSIN [Concomitant]
     Active Substance: PRAZOSIN\PRAZOSIN HYDROCHLORIDE
     Indication: Hypertension
     Route: 048
     Dates: start: 2018, end: 20231025
  23. AZACITIDINE [Concomitant]
     Active Substance: AZACITIDINE
     Indication: Acute myeloid leukaemia
     Dosage: CYCLE 1, INITIAL
     Route: 058
     Dates: start: 20231028, end: 20231102
  24. AZACITIDINE [Concomitant]
     Active Substance: AZACITIDINE
     Indication: Acute myeloid leukaemia
     Dosage: CYCLE 2, MAINTENANCE?FOR SEVEN DAYS, CYCLES EVERY 28 DAYS.
     Route: 058
     Dates: start: 20240409, end: 20240412
  25. AZACITIDINE [Concomitant]
     Active Substance: AZACITIDINE
     Indication: Acute myeloid leukaemia
  26. SULFAMETHOXAZOLE\TRIMETHOPRIM [Concomitant]
     Active Substance: SULFAMETHOXAZOLE\TRIMETHOPRIM
     Indication: Pneumocystis jirovecii infection
     Dosage: 160+800 MG
     Route: 048
     Dates: start: 20231025, end: 20240405
  27. METOPROLOL [Concomitant]
     Active Substance: METOPROLOL
     Indication: Atrial fibrillation
     Dosage: SINGLE DOSE (2 DOSES SAME DAY)
     Route: 042
     Dates: start: 20240525, end: 20240525
  28. SALINE [Concomitant]
     Active Substance: SODIUM CHLORIDE
     Indication: Hyperlactacidaemia
     Dosage: 100 CC CONTINUOUS INFUSION 0.9%?SOLUTION
     Route: 042
     Dates: start: 20240524, end: 20240525

REACTIONS (22)
  - Cardio-respiratory arrest [Fatal]
  - Pain [Recovered/Resolved]
  - Systemic mycosis [Recovered/Resolved]
  - Cough [Recovered/Resolved]
  - Skin mass [Unknown]
  - Neutropenia [Recovered/Resolved]
  - Pyrexia [Recovered/Resolved]
  - Oxygen saturation decreased [Recovered/Resolved]
  - Skin lesion [Recovered/Resolved]
  - Chills [Recovered/Resolved]
  - Pulmonary mass [Recovered/Resolved]
  - Hypokalaemia [Not Recovered/Not Resolved]
  - Atrial fibrillation [Fatal]
  - Epistaxis [Recovered/Resolved]
  - Clostridium difficile infection [Not Recovered/Not Resolved]
  - Klebsiella infection [Not Recovered/Not Resolved]
  - Anal ulcer [Not Recovered/Not Resolved]
  - Acarodermatitis [Not Recovered/Not Resolved]
  - Dermatitis allergic [Recovered/Resolved]
  - Febrile neutropenia [Recovered/Resolved]
  - Febrile neutropenia [Recovered/Resolved]
  - Bacillus bacteraemia [Not Recovered/Not Resolved]

NARRATIVE: CASE EVENT DATE: 20230101
